FAERS Safety Report 18591030 (Version 1)
Quarter: 2020Q4

REPORT INFORMATION
  Report Type: Report from Study
  Country: IT (occurrence: IT)
  Receive Date: 20201208
  Receipt Date: 20201208
  Transmission Date: 20210114
  Serious: Yes (Hospitalization)
  Sender: FDA-Public Use
  Company Number: IT-MYLANLABS-2020M1101064

PATIENT
  Age: 72 Year
  Sex: Male

DRUGS (7)
  1. HYDROXYCHLOROQUINE [Suspect]
     Active Substance: HYDROXYCHLOROQUINE
     Indication: COVID-19
     Dosage: 800 MILLIGRAM, QD
     Route: 065
  2. DARUNAVIR [Suspect]
     Active Substance: DARUNAVIR
     Indication: COVID-19
     Dosage: 800 MILLIGRAM, QD
     Route: 065
  3. RITONAVIR. [Suspect]
     Active Substance: RITONAVIR
     Indication: COVID-19
     Dosage: 100 MILLIGRAM, QD
     Route: 065
  4. OSELTAMIVIR [Suspect]
     Active Substance: OSELTAMIVIR
     Indication: COVID-19
     Dosage: 150 MILLIGRAM, QD
     Route: 065
  5. WARFARIN [Suspect]
     Active Substance: WARFARIN
     Indication: COVID-19
     Dosage: 5 MILLIGRAM, QD
     Route: 065
  6. AMIODARONE [Suspect]
     Active Substance: AMIODARONE
     Indication: COVID-19
     Dosage: 200 MILLIGRAM, QD
     Route: 065
  7. CEFTAROLINE [Suspect]
     Active Substance: CEFTAROLINE
     Indication: COVID-19
     Dosage: 1800 MILLIGRAM, QD
     Route: 065

REACTIONS (2)
  - Delirium [Unknown]
  - Off label use [Unknown]
